FAERS Safety Report 5498074-2 (Version None)
Quarter: 2007Q4

REPORT INFORMATION
  Report Type: 
  Country: None (occurrence: None)
  Receive Date: 20071018
  Receipt Date: 20070711
  Transmission Date: 20080405
  Serious: Yes (Hospitalization, Other)
  Sender: FDA-Public Use
  Company Number: 2007059676

PATIENT
  Age: 45 Year
  Sex: Female
  Weight: 46.7 kg

DRUGS (3)
  1. NEURONTIN [Suspect]
     Indication: NEURALGIA
     Dosage: 100 MG
     Dates: start: 19990101, end: 20070701
  2. MULTI-VITAMINS [Concomitant]
  3. ALL OTHER THERAPEUTIC PRODUCTS [Concomitant]

REACTIONS (12)
  - ASTHENIA [None]
  - DEAFNESS [None]
  - EPISTAXIS [None]
  - FACIAL PAIN [None]
  - LOSS OF CONSCIOUSNESS [None]
  - MIGRAINE [None]
  - NAUSEA [None]
  - NEURALGIA [None]
  - TACHYCARDIA [None]
  - THROAT IRRITATION [None]
  - TINNITUS [None]
  - TROPONIN T INCREASED [None]
